FAERS Safety Report 19430275 (Version 1)
Quarter: 2021Q2

REPORT INFORMATION
  Report Type: Spontaneous
  Country: HU (occurrence: HU)
  Receive Date: 20210618
  Receipt Date: 20210618
  Transmission Date: 20210717
  Serious: Yes (Death)
  Sender: FDA-Public Use
  Company Number: HU-BIOGEN-2021BI01020553

PATIENT
  Age: 4 Year
  Sex: Male

DRUGS (1)
  1. SPINRAZA [Suspect]
     Active Substance: NUSINERSEN
     Indication: SPINAL MUSCULAR ATROPHY
     Dosage: FREQUENCY OF ADMINISTRATION: FIRST 3 EVERY 2 WEEKS AND THAN ON THE 58TH DAY OF STARTING THERAPY, ...
     Route: 037
     Dates: start: 20210422, end: 20210422

REACTIONS (1)
  - Death [Fatal]
